FAERS Safety Report 18256038 (Version 1)
Quarter: 2020Q3

REPORT INFORMATION
  Report Type: Report from Study
  Country: None (occurrence: BR)
  Receive Date: 20200910
  Receipt Date: 20200910
  Transmission Date: 20201103
  Serious: Yes (Other)
  Sender: FDA-Public Use
  Company Number: BR-ABBVIE-20K-020-3557905-00

PATIENT
  Sex: Male

DRUGS (1)
  1. HUMIRA [Suspect]
     Active Substance: ADALIMUMAB
     Indication: UVEITIS
     Dosage: UNKNOWN
     Route: 058
     Dates: start: 20180824

REACTIONS (3)
  - Bedridden [Unknown]
  - Upper limb fracture [Unknown]
  - Fall [Unknown]
